FAERS Safety Report 8697594 (Version 2)
Quarter: 2013Q4

REPORT INFORMATION
  Report Type: Report from Study
  Country: JP (occurrence: JP)
  Receive Date: 20120801
  Receipt Date: 20131105
  Transmission Date: 20140711
  Serious: Yes (Hospitalization)
  Sender: FDA-Public Use
  Company Number: JP-009507513-1205USA05003

PATIENT
  Age: 37 Year
  Sex: Male

DRUGS (5)
  1. ISENTRESS [Suspect]
     Indication: HIV INFECTION
     Dosage: DIVIDED DOSE FREQUENCY UNKNOWN
     Route: 048
     Dates: start: 20100608
  2. TRUVADA [Suspect]
     Indication: HIV INFECTION
     Dosage: DIVIDED DOSE FREQUENCY U
     Route: 048
     Dates: start: 20100608
  3. PEPCIDRPD [Concomitant]
     Indication: GASTRITIS
     Dosage: 20 MG, BID
     Route: 048
     Dates: start: 20100409
  4. ISENTRESS TABLETS 400MG [Suspect]
     Dosage: DIVIDED DOSE FREQUENCY U
     Route: 048
     Dates: start: 20100608
  5. GASTER D [Concomitant]
     Indication: GASTRITIS
     Route: 048
     Dates: start: 20100409

REACTIONS (4)
  - Pneumocystis jirovecii pneumonia [Recovered/Resolved]
  - Immune reconstitution inflammatory syndrome [Recovered/Resolved]
  - Pneumocystis jirovecii pneumonia [Recovered/Resolved]
  - Immune reconstitution inflammatory syndrome [Recovered/Resolved]
